FAERS Safety Report 19429206 (Version 1)
Quarter: 2021Q2

REPORT INFORMATION
  Report Type: Spontaneous
  Country: DE (occurrence: DE)
  Receive Date: 20210617
  Receipt Date: 20210617
  Transmission Date: 20210717
  Serious: Yes (Disabling, Other)
  Sender: FDA-Public Use
  Company Number: DE-ASTRAZENECA-2021A514536

PATIENT
  Age: 71 Year
  Sex: Male
  Weight: 80 kg

DRUGS (16)
  1. HERZ ASS 100 [Concomitant]
     Dosage: CAPTURE AT 7:00 A.M.100.0MG UNKNOWN
     Route: 065
  2. JOD [Concomitant]
     Indication: PRURITUS GENITAL
     Dosage: APPLY TO THE GLANS
     Route: 065
  3. MULTILIND [Concomitant]
     Indication: GENITAL INFECTION FUNGAL
     Route: 065
  4. FORXIGA [Suspect]
     Active Substance: DAPAGLIFLOZIN
     Dosage: CAPTURE AT 11:30
     Route: 048
  5. EMSELEX 15 [Concomitant]
     Dosage: TAKING IT AT 10 PM15.0MG UNKNOWN
     Route: 065
  6. ALFUZOSIN [Concomitant]
     Active Substance: ALFUZOSIN
     Dosage: CAPTURE AT 7:00 A.M.1.0DF UNKNOWN
     Route: 065
  7. CLARIUM [Concomitant]
     Dosage: CAPTURE AT 7:00 A.M., 11:30 P.M., 5:30 P.M.1.0DF UNKNOWN
     Route: 065
  8. MULTILIND [Concomitant]
     Indication: PRURITUS GENITAL
     Route: 065
  9. PIRACETAM AL 800 [Concomitant]
     Dosage: CAPTURE AT 7:00 A.M.800.0MG UNKNOWN
     Route: 065
  10. ATORVASTATIN [Concomitant]
     Active Substance: ATORVASTATIN
     Dosage: CAPTURE AT 7:00 A.M.1.0DF UNKNOWN
     Route: 065
  11. COMTESS [Concomitant]
     Active Substance: ENTACAPONE
     Dosage: TAKING IT AT 10 PM200.0MG UNKNOWN
     Route: 065
  12. JOD [Concomitant]
     Indication: GENITAL INFECTION FUNGAL
     Dosage: APPLY TO THE GLANS
     Route: 065
  13. MADOPAR [Concomitant]
     Active Substance: BENSERAZIDE HYDROCHLORIDE\LEVODOPA
     Dosage: 1/2?0?0 TAKING 6:00PM 1/2 TABLET IN WATER DISSOLVED0.5DF UNKNOWN
     Route: 048
  14. ISICOM [Concomitant]
     Active Substance: CARBIDOPA\LEVODOPA
     Dosage: TAKING 7 A.M., 11.30 A.M., 5:30 P.M. (2X), 10 P.M. (2X)6.0DF UNKNOWN
     Route: 065
  15. TANNOLACT BADEZUSATZ [Concomitant]
     Indication: GENITAL INFECTION FUNGAL
     Dosage: UNKNOWN
     Route: 065
  16. ONGENTYS 50 [Concomitant]
     Dosage: CAPTURE AT 7:00 A.M.50.0MG UNKNOWN
     Route: 065

REACTIONS (20)
  - Pruritus genital [Recovering/Resolving]
  - Fatigue [Unknown]
  - Sudden onset of sleep [Unknown]
  - Dizziness [Unknown]
  - Penile pain [Recovering/Resolving]
  - Dry mouth [Unknown]
  - Fall [Unknown]
  - Penile swelling [Recovering/Resolving]
  - Phimosis [Recovering/Resolving]
  - Diarrhoea [Unknown]
  - Muscle rupture [Unknown]
  - Bone contusion [Unknown]
  - Wound [Recovering/Resolving]
  - Hallucination [Unknown]
  - Psoriasis [Unknown]
  - Night sweats [Unknown]
  - Thirst [Unknown]
  - Micturition disorder [Recovering/Resolving]
  - Contusion [Unknown]
  - Urethritis noninfective [Recovering/Resolving]

NARRATIVE: CASE EVENT DATE: 20210405
